FAERS Safety Report 4934954-1 (Version None)
Quarter: 2006Q1

REPORT INFORMATION
  Report Type: 
  Country: None (occurrence: None)
  Receive Date: 20060303
  Receipt Date: 20060303
  Transmission Date: 20060701
  Serious: Yes (Other)
  Sender: FDA-Public Use
  Company Number: None

PATIENT
  Age: 18 Year
  Sex: Female
  Weight: 56.6996 kg

DRUGS (2)
  1. CREST W/ FLUORIDE [Suspect]
     Indication: DENTAL CARE
     Dosage: 4T RINSED    TWICE DAILY  (DURATION: ONCE)
     Dates: start: 20060102, end: 20060102
  2. CREST W/ FLUORIDE [Suspect]
     Indication: DENTAL CARE
     Dosage: SMALL AMOUNT ON TOOTHBRUSH   TWICE+ DAILY
     Dates: start: 20060212, end: 20060215

REACTIONS (11)
  - CHEILITIS [None]
  - GLOSSODYNIA [None]
  - HYPERSENSITIVITY [None]
  - INFECTION [None]
  - LIP BLISTER [None]
  - LIP PAIN [None]
  - LYMPHADENOPATHY [None]
  - NECK PAIN [None]
  - ORAL PAIN [None]
  - PHARMACEUTICAL PRODUCT COMPLAINT [None]
  - SWOLLEN TONGUE [None]
